FAERS Safety Report 5199861-0 (Version None)
Quarter: 2007Q1

REPORT INFORMATION
  Report Type: 
  Country: None (occurrence: None)
  Receive Date: 20070103
  Receipt Date: 20070103
  Transmission Date: 20070707
  Serious: Yes (Life-Threatening, Hospitalization)
  Sender: FDA-Public Use
  Company Number: None

PATIENT
  Sex: Female
  Weight: 68.0396 kg

DRUGS (1)
  1. ACIPHEX [Suspect]
     Indication: GASTROOESOPHAGEAL REFLUX DISEASE
     Dosage: STANDARD DAILY PO
     Route: 048
     Dates: start: 20061130, end: 20061130

REACTIONS (2)
  - HEPATIC ENZYME INCREASED [None]
  - SMALL INTESTINAL OBSTRUCTION [None]
